FAERS Safety Report 23725368 (Version 2)
Quarter: 2024Q2

REPORT INFORMATION
  Report Type: Spontaneous
  Country: FR (occurrence: None)
  Receive Date: 20240410
  Receipt Date: 20240416
  Transmission Date: 20240716
  Serious: Yes (Hospitalization, Other)
  Sender: FDA-Public Use
  Company Number: FR-ROCHE-3538981

PATIENT
  Sex: Female

DRUGS (7)
  1. TOCILIZUMAB [Suspect]
     Active Substance: TOCILIZUMAB
     Indication: Takayasu^s arteritis
     Route: 065
     Dates: start: 202207
  2. OTEZLA [Concomitant]
     Active Substance: APREMILAST
  3. METHOTREXATE [Concomitant]
     Active Substance: METHOTREXATE
  4. SOLU-MEDROL [Concomitant]
     Active Substance: METHYLPREDNISOLONE SODIUM SUCCINATE
  5. NEBIVOLOL [Concomitant]
     Active Substance: NEBIVOLOL
  6. SPIRONOLACTONE [Concomitant]
     Active Substance: SPIRONOLACTONE
  7. CLINDAMYCIN [Concomitant]
     Active Substance: CLINDAMYCIN

REACTIONS (7)
  - Off label use [Unknown]
  - Sinusitis [Unknown]
  - Nasal polyps [Unknown]
  - Sinusitis fungal [Unknown]
  - Paranasal sinus abscess [Unknown]
  - Lipids increased [Unknown]
  - Aspergillus infection [Unknown]

NARRATIVE: CASE EVENT DATE: 20240101
